FAERS Safety Report 6902237-6 (Version None)
Quarter: 2010Q3

REPORT INFORMATION
  Report Type: 
  Country: None (occurrence: None)
  Receive Date: 20100803
  Receipt Date: 20080508
  Transmission Date: 20110219
  Serious: No
  Sender: FDA-Public Use
  Company Number: US-PFIZER INC-2008026438

PATIENT
  Age: 80 Year
  Sex: Female

DRUGS (2)
  1. LYRICA [Suspect]
  2. WARFARIN SODIUM [Interacting]

REACTIONS (3)
  - DRUG INTERACTION [None]
  - HYPERSENSITIVITY [None]
  - RASH [None]
